FAERS Safety Report 10731204 (Version 2)
Quarter: 2015Q2

REPORT INFORMATION
  Report Type: Report from Study
  Country: US (occurrence: US)
  Receive Date: 20150122
  Receipt Date: 20150417
  Transmission Date: 20150821
  Serious: Yes (Other)
  Sender: FDA-Public Use
  Company Number: US-MYLANLABS-2015M1001053

PATIENT
  Sex: Female

DRUGS (2)
  1. AMNESTEEM [Suspect]
     Active Substance: ISOTRETINOIN
     Dosage: 60 MG, QD
     Dates: start: 2014
  2. AMNESTEEM [Suspect]
     Active Substance: ISOTRETINOIN
     Dosage: 60 MG, QD
     Dates: start: 20140926

REACTIONS (1)
  - Exposure during pregnancy [Not Recovered/Not Resolved]
